FAERS Safety Report 14394305 (Version 1)
Quarter: 2018Q1

REPORT INFORMATION
  Report Type: Spontaneous
  Country: US (occurrence: US)
  Receive Date: 20180116
  Receipt Date: 20180116
  Transmission Date: 20180509
  Serious: No
  Sender: FDA-Public Use
  Company Number: US-REGENERON PHARMACEUTICALS, INC.-2017-23186

PATIENT

DRUGS (2)
  1. EYLEA [Suspect]
     Active Substance: AFLIBERCEPT
     Dosage: UNK, MONTHLY, THIRD INJECTION
     Route: 031
     Dates: start: 20170926, end: 20170926
  2. EYLEA [Suspect]
     Active Substance: AFLIBERCEPT
     Indication: NEOVASCULAR AGE-RELATED MACULAR DEGENERATION
     Dosage: UNK, MONTHLY
     Route: 031
     Dates: start: 2017

REACTIONS (3)
  - Visual impairment [Not Recovered/Not Resolved]
  - Disease progression [Not Recovered/Not Resolved]
  - Depressed mood [Not Recovered/Not Resolved]
